FAERS Safety Report 8480239 (Version 7)
Quarter: 2012Q4

REPORT INFORMATION
  Report Type: Report from Study
  Country: DE (occurrence: DE)
  Receive Date: 20120328
  Receipt Date: 20121004
  Transmission Date: 20130627
  Serious: Yes (Hospitalization)
  Sender: FDA-Public Use
  Company Number: DE-ROCHE-1050366

PATIENT
  Age: 77 Year
  Sex: Female
  Weight: 60.5 kg

DRUGS (7)
  1. ZELBORAF [Suspect]
     Indication: MALIGNANT MELANOMA
     Dosage: Most recent dose prior to SAE 21/Feb/2012
     Route: 048
     Dates: start: 20120109, end: 20120222
  2. ZELBORAF [Suspect]
     Route: 048
     Dates: start: 20120227, end: 20120312
  3. TILIDINE [Concomitant]
     Dosage: Drug name: TILIDIN
     Route: 065
     Dates: start: 201111
  4. NOVALGIN [Concomitant]
     Route: 065
     Dates: start: 201111
  5. OMEPRAZOLE [Concomitant]
     Route: 065
     Dates: start: 200502
  6. ENALAPRIL [Concomitant]
     Dosage: 10/25 mg
     Route: 065
     Dates: start: 200502
  7. SIMVASTATIN [Concomitant]
     Route: 065
     Dates: start: 200502

REACTIONS (1)
  - Abdominal pain [Recovered/Resolved]
